FAERS Safety Report 20004185 (Version 1)
Quarter: 2021Q4

REPORT INFORMATION
  Report Type: Spontaneous
  Country: FR (occurrence: FR)
  Receive Date: 20211027
  Receipt Date: 20211027
  Transmission Date: 20220303
  Serious: Yes (Other)
  Sender: FDA-Public Use
  Company Number: FR-ORGANON-O2110FRA002522

PATIENT
  Age: 33 Year
  Sex: Female
  Weight: 88 kg

DRUGS (2)
  1. NEXPLANON [Suspect]
     Active Substance: ETONOGESTREL
     Dosage: 1 IMPLANT IN HER RIGHT ARM (LEFT-HANDED PATIENT).
     Dates: start: 20210123
  2. NEXPLANON [Concomitant]
     Active Substance: ETONOGESTREL
     Dosage: 1 IMPLANT
     Dates: end: 20210123

REACTIONS (6)
  - Pregnancy with implant contraceptive [Recovered/Resolved]
  - Thyroidectomy [Unknown]
  - Unintended pregnancy [Recovered/Resolved]
  - Abortion induced [Unknown]
  - Device placement issue [Unknown]
  - Complication associated with device [Recovered/Resolved]

NARRATIVE: CASE EVENT DATE: 20210101
